FAERS Safety Report 25331374 (Version 1)
Quarter: 2025Q2

REPORT INFORMATION
  Report Type: Spontaneous
  Country: RS (occurrence: RS)
  Receive Date: 20250519
  Receipt Date: 20250519
  Transmission Date: 20250717
  Serious: Yes (Other)
  Sender: JOHNSON AND JOHNSON
  Company Number: RS-JNJFOC-20250514354

PATIENT
  Age: 75 Year
  Sex: Male

DRUGS (1)
  1. ERLEADA [Suspect]
     Active Substance: APALUTAMIDE
     Indication: Prostate cancer
     Dosage: APALUTAMIDE 240MG/DAY+LHRH AGONISTS
     Route: 048
     Dates: start: 202406

REACTIONS (2)
  - Deep vein thrombosis [Recovered/Resolved]
  - Rash [Recovered/Resolved]
